FAERS Safety Report 23278661 (Version 1)
Quarter: 2023Q4

REPORT INFORMATION
  Report Type: Spontaneous
  Country: IN (occurrence: IN)
  Receive Date: 20231208
  Receipt Date: 20231208
  Transmission Date: 20240109
  Serious: Yes (Life-Threatening)
  Sender: FDA-Public Use
  Company Number: IN-BAUSCH-BL-2023-017963

PATIENT
  Age: 7 Year
  Sex: Female

DRUGS (8)
  1. DEXAMETHASONE [Suspect]
     Active Substance: DEXAMETHASONE
     Indication: Stevens-Johnson syndrome
     Route: 030
  2. DEXAMETHASONE [Suspect]
     Active Substance: DEXAMETHASONE
     Indication: Toxic epidermal necrolysis
  3. IMMUNE GLOBULIN NOS [Suspect]
     Active Substance: IMMUNE GLOBULIN NOS
     Indication: Stevens-Johnson syndrome
     Route: 042
  4. IMMUNE GLOBULIN NOS [Suspect]
     Active Substance: IMMUNE GLOBULIN NOS
     Indication: Toxic epidermal necrolysis
  5. CEFIXIME [Concomitant]
     Active Substance: CEFIXIME
     Indication: Pyrexia
  6. CEFIXIME [Concomitant]
     Active Substance: CEFIXIME
     Indication: Abdominal pain
  7. GENTAMICIN [Concomitant]
     Active Substance: GENTAMICIN
     Indication: Pyrexia
  8. GENTAMICIN [Concomitant]
     Active Substance: GENTAMICIN
     Indication: Abdominal pain

REACTIONS (1)
  - Therapy non-responder [Unknown]
